FAERS Safety Report 5056328-8 (Version None)
Quarter: 2006Q3

REPORT INFORMATION
  Report Type: 
  Country: None (occurrence: None)
  Receive Date: 20060720
  Receipt Date: 20060712
  Transmission Date: 20061208
  Serious: Yes (Death, Hospitalization)
  Sender: FDA-Public Use
  Company Number: PHBS2006NL10434

PATIENT
  Age: 52 Year
  Sex: Female

DRUGS (1)
  1. IMATINIB [Suspect]
     Indication: GASTROINTESTINAL STROMAL TUMOUR
     Dosage: 400 MG, QD

REACTIONS (7)
  - BLOOD GLUCAGON DECREASED [None]
  - GASTROINTESTINAL STROMAL TUMOUR [None]
  - HYPOGLYCAEMIA [None]
  - INSULIN C-PEPTIDE DECREASED [None]
  - INSULIN-LIKE GROWTH FACTOR DECREASED [None]
  - INSULIN-LIKE GROWTH FACTOR INCREASED [None]
  - MALIGNANT NEOPLASM PROGRESSION [None]
